FAERS Safety Report 16634560 (Version 1)
Quarter: 2019Q3

REPORT INFORMATION
  Report Type: Spontaneous
  Country: DK (occurrence: DK)
  Receive Date: 20190726
  Receipt Date: 20190726
  Transmission Date: 20191004
  Serious: Yes (Other)
  Sender: FDA-Public Use
  Company Number: DK-009507513-1907DNK013464

PATIENT
  Age: 73 Year
  Sex: Male

DRUGS (1)
  1. KEYTRUDA [Suspect]
     Active Substance: PEMBROLIZUMAB
     Indication: LUNG CANCER METASTATIC
     Dosage: DOSE: UNKNOWN. STRENGTH: UNKNOWN
     Route: 042
     Dates: start: 20181029

REACTIONS (2)
  - Renal impairment [Recovered/Resolved]
  - Blood creatine increased [Recovered/Resolved]

NARRATIVE: CASE EVENT DATE: 201811
